FAERS Safety Report 4543965-X (Version None)
Quarter: 2005Q1

REPORT INFORMATION
  Report Type: 
  Country: None (occurrence: None)
  Receive Date: 20050103
  Receipt Date: 20030929
  Transmission Date: 20050727
  Serious: Yes (Hospitalization)
  Sender: FDA-Public Use
  Company Number: GXKR2003GB00509

PATIENT
  Age: 29 Year
  Sex: Male

DRUGS (4)
  1. DIAZEPAM [Suspect]
     Dosage: 70 MG, ONCE/SINGLE, ORAL
     Route: 048
  2. QUETIAPINE (QUETIAPINE) [Suspect]
     Dosage: 12000 MG, ONCE/SINGLE, ORAL
     Route: 048
  3. ANTIBIOTICS [Suspect]
  4. FLUMAZENIL [Concomitant]

REACTIONS (17)
  - BLOOD PRESSURE INCREASED [None]
  - BRAIN OEDEMA [None]
  - CLONUS [None]
  - COAGULATION TEST ABNORMAL [None]
  - DECUBITUS ULCER [None]
  - ELECTROCARDIOGRAM QT PROLONGED [None]
  - GLASGOW COMA SCALE ABNORMAL [None]
  - HYPERREFLEXIA [None]
  - INTENTIONAL MISUSE [None]
  - INTERNATIONAL NORMALISED RATIO DECREASED [None]
  - LEG AMPUTATION [None]
  - LEUKOCYTOSIS [None]
  - LIVER FUNCTION TEST ABNORMAL [None]
  - METABOLIC ACIDOSIS [None]
  - MIOSIS [None]
  - STUPOR [None]
  - TACHYCARDIA [None]
